APPROVED DRUG PRODUCT: RESTORIL
Active Ingredient: TEMAZEPAM
Strength: 22.5MG
Dosage Form/Route: CAPSULE;ORAL
Application: N018163 | Product #004 | TE Code: AB
Applicant: SPECGX LLC
Approved: Nov 2, 2004 | RLD: Yes | RS: No | Type: RX